FAERS Safety Report 6190927-5 (Version None)
Quarter: 2009Q2

REPORT INFORMATION
  Report Type: 
  Country: None (occurrence: None)
  Receive Date: 20090513
  Receipt Date: 20090428
  Transmission Date: 20091009
  Serious: Yes (Death, Life-Threatening)
  Sender: FDA-Public Use
  Company Number: 2009001288

PATIENT
  Sex: Male

DRUGS (1)
  1. ERLOTINIB (ERLOTINIB) (TABLET) (ERLOTINIB) [Suspect]
     Indication: NON-SMALL CELL LUNG CANCER
     Dosage: (150 MG, QD), ORAL
     Route: 048
     Dates: start: 20081218, end: 20090418

REACTIONS (5)
  - CARDIAC ARREST [None]
  - EFFUSION [None]
  - LUNG DISORDER [None]
  - PULMONARY EMBOLISM [None]
  - RESPIRATORY DISORDER [None]
